FAERS Safety Report 22377177 (Version 2)
Quarter: 2023Q2

REPORT INFORMATION
  Report Type: Spontaneous
  Country: AE (occurrence: AE)
  Receive Date: 20230529
  Receipt Date: 20230613
  Transmission Date: 20230721
  Serious: Yes (Hospitalization)
  Sender: FDA-Public Use
  Company Number: AE-NOVOPROD-1036975

PATIENT
  Age: 3 Year
  Sex: Male
  Weight: 16.6 kg

DRUGS (2)
  1. NOVOSEVEN [Suspect]
     Active Substance: COAGULATION FACTOR VIIA RECOMBINANT HUMAN
     Indication: Prophylaxis
     Dosage: 1000 ?G, QW
     Route: 042
  2. NOVOSEVEN [Suspect]
     Active Substance: COAGULATION FACTOR VIIA RECOMBINANT HUMAN
     Indication: Factor VII deficiency
     Dosage: 2000U EVERY 96 HOURS
     Route: 042
     Dates: start: 20220824

REACTIONS (5)
  - Traumatic haemorrhage [Unknown]
  - Fall [Unknown]
  - Coxsackie viral infection [Not Recovered/Not Resolved]
  - Product dose omission issue [Unknown]
  - Off label use [Unknown]

NARRATIVE: CASE EVENT DATE: 20220824
